FAERS Safety Report 5245993-8 (Version None)
Quarter: 2007Q1

REPORT INFORMATION
  Report Type: 
  Country: None (occurrence: None)
  Receive Date: 20070220
  Receipt Date: 20070205
  Transmission Date: 20070707
  Serious: Yes (Disabling)
  Sender: FDA-Public Use
  Company Number: FABR-11857

PATIENT
  Age: 33 Year
  Sex: Male
  Weight: 64 kg

DRUGS (2)
  1. FABRAZYME [Suspect]
     Indication: FABRY'S DISEASE
     Dosage: 1 MG/KG Q2WKS IV
     Route: 042
     Dates: start: 20050808
  2. CORTICOSTEROIDS [Concomitant]

REACTIONS (1)
  - VESTIBULAR NEURONITIS [None]
